FAERS Safety Report 10363885 (Version 1)
Quarter: 2014Q3

REPORT INFORMATION
  Report Type: Spontaneous
  Country: DE (occurrence: None)
  Receive Date: 20140801
  Receipt Date: 20140801
  Transmission Date: 20150326
  Serious: Yes (Other)
  Sender: FDA-Public Use
  Company Number: VAL_03256_2014

PATIENT

DRUGS (6)
  1. CORTICOSTEROIDS [Suspect]
     Active Substance: CORTICOSTEROID NOS
     Indication: EXPOSURE DURING PREGNANCY
     Dosage: (DF TRANSPLACENTAL)
     Route: 064
  2. METOPROLOL TARTRATE. [Suspect]
     Active Substance: METOPROLOL TARTRATE
     Indication: MATERNAL EXPOSURE DURING PREGNANCY
     Dosage: (DF TRANSPLACENTAL)
     Route: 064
  3. AMPICILLIN [Suspect]
     Active Substance: AMPICILLIN
     Indication: MATERNAL EXPOSURE DURING PREGNANCY
     Dosage: (DF TRANSPLACENTAL)
     Route: 064
  4. DEQUALINIUM [Suspect]
     Active Substance: DEQUALINIUM
     Indication: MATERNAL EXPOSURE DURING PREGNANCY
     Dosage: (DF TRANSPLACENTAL)
     Route: 064
  5. FENOTEROL [Suspect]
     Active Substance: FENOTEROL
     Indication: MATERNAL EXPOSURE DURING PREGNANCY
     Dosage: (DF TRANSPLACENTAL)
     Route: 064
  6. OFLOXACIN. [Suspect]
     Active Substance: OFLOXACIN
     Indication: MATERNAL EXPOSURE DURING PREGNANCY
     Dosage: (DF TRANSPLACENTAL)
     Route: 064

REACTIONS (3)
  - Brachydactyly [None]
  - Maternal drugs affecting foetus [None]
  - Bone deformity [None]
